FAERS Safety Report 21172233 (Version 8)
Quarter: 2022Q4

REPORT INFORMATION
  Report Type: Report from Study
  Country: DE (occurrence: None)
  Receive Date: 20220804
  Receipt Date: 20221125
  Transmission Date: 20230113
  Serious: Yes (Hospitalization)
  Sender: FDA-Public Use
  Company Number: DE-ROCHE-3140767

PATIENT
  Age: 69 Year
  Sex: Male
  Weight: 82.5 kg

DRUGS (14)
  1. ATEZOLIZUMAB [Suspect]
     Active Substance: ATEZOLIZUMAB
     Indication: Pancreatic carcinoma metastatic
     Dosage: LAST DOSE OF ATEZOLIZUMAB BEFORE THE EVENT WAS ADMINISTERED ON STUDY DAY 73 (01/JUL/2022)?LAST DOSE
     Route: 041
     Dates: start: 20220422, end: 20220715
  2. PELAREOREP [Suspect]
     Active Substance: PELAREOREP
     Indication: Pancreatic carcinoma metastatic
     Dosage: 4.5 X10^10 TCID50/ML. ON 28/JUL/2022, LAST DOSE OF PELAREOREP WAS GIVEN ON STUDY DAY 100.?LAST DOSE
     Route: 042
     Dates: start: 20220420
  3. GEMCITABINE [Suspect]
     Active Substance: GEMCITABINE
     Indication: Pancreatic carcinoma metastatic
     Dosage: LAST DOSE OF GEMCITABINE BEFORE THE EVENT WAS ADMINISTERED ON STUDY DAY 71 (29/JUN/2022)?LAST DOSE O
     Route: 042
     Dates: start: 20220420, end: 20220713
  4. GEMCITABINE [Suspect]
     Active Substance: GEMCITABINE
     Route: 042
     Dates: start: 20220727
  5. PACLITAXEL [Suspect]
     Active Substance: PACLITAXEL
     Indication: Pancreatic carcinoma metastatic
     Dosage: LAST DOSE OF NAB-PACLITAXEL BEFORE THE EVENT WAS ADMINISTERED ON STUDY DAY 71 (29/JUN/2022)?LAST DOS
     Route: 042
     Dates: start: 20220420, end: 20220713
  6. PACLITAXEL [Suspect]
     Active Substance: PACLITAXEL
     Route: 042
     Dates: start: 20220727
  7. TORSEMIDE [Concomitant]
     Active Substance: TORSEMIDE
     Route: 065
     Dates: start: 20220627
  8. TORSEMIDE [Concomitant]
     Active Substance: TORSEMIDE
     Route: 048
     Dates: start: 20220630, end: 20220707
  9. TORSEMIDE [Concomitant]
     Active Substance: TORSEMIDE
     Dates: start: 20220708
  10. TORSEMIDE [Concomitant]
     Active Substance: TORSEMIDE
     Dates: start: 20220714
  11. TORSEMIDE [Concomitant]
     Active Substance: TORSEMIDE
     Dates: start: 20220727
  12. TORSEMIDE [Concomitant]
     Active Substance: TORSEMIDE
     Dates: start: 20220802
  13. TORSEMIDE [Concomitant]
     Active Substance: TORSEMIDE
     Route: 048
     Dates: start: 20220915
  14. ALLOPURINOL [Concomitant]
     Active Substance: ALLOPURINOL
     Route: 048

REACTIONS (5)
  - Oedema peripheral [Recovering/Resolving]
  - Autoimmune dermatitis [Recovered/Resolved]
  - Blood creatinine increased [Recovered/Resolved]
  - Acute kidney injury [Recovered/Resolved]
  - Tubulointerstitial nephritis [Unknown]

NARRATIVE: CASE EVENT DATE: 20220704
